FAERS Safety Report 6829737-1 (Version None)
Quarter: 2010Q3

REPORT INFORMATION
  Report Type: 
  Country: None (occurrence: None)
  Receive Date: 20100709
  Receipt Date: 20070605
  Transmission Date: 20110219
  Serious: No
  Sender: FDA-Public Use
  Company Number: US-PFIZER INC-2007013391

PATIENT
  Sex: Male
  Weight: 69.4 kg

DRUGS (7)
  1. CHANTIX [Suspect]
     Indication: SMOKING CESSATION THERAPY
     Route: 048
     Dates: start: 20070201, end: 20070213
  2. CHANTIX [Suspect]
     Indication: TOBACCO ABUSE
  3. CELEBREX [Concomitant]
  4. HYDROXYZINE [Concomitant]
  5. TYLENOL-500 [Concomitant]
  6. VITAMINS [Concomitant]
  7. ALL OTHER THERAPEUTIC PRODUCTS [Concomitant]

REACTIONS (4)
  - ABNORMAL DREAMS [None]
  - LUNG DISORDER [None]
  - NASOPHARYNGITIS [None]
  - SINUS DISORDER [None]
